FAERS Safety Report 5487691-1 (Version None)
Quarter: 2007Q4

REPORT INFORMATION
  Report Type: 
  Country: None (occurrence: None)
  Receive Date: 20071017
  Receipt Date: 20071010
  Transmission Date: 20080405
  Serious: Yes (Other)
  Sender: FDA-Public Use
  Company Number: PHBS2007BR16891

PATIENT
  Age: 21 Year
  Sex: Female
  Weight: 86 kg

DRUGS (2)
  1. FORASEQ [Suspect]
     Indication: BRONCHITIS CHRONIC
     Dosage: UNK, QD
  2. SINGULAIR [Concomitant]

REACTIONS (5)
  - ABORTION SPONTANEOUS [None]
  - DEPRESSION [None]
  - DRUG EXPOSURE DURING PREGNANCY [None]
  - DYSPNOEA [None]
  - WEIGHT INCREASED [None]
